FAERS Safety Report 4570611-1 (Version None)
Quarter: 2005Q1

REPORT INFORMATION
  Report Type: 
  Country: None (occurrence: None)
  Receive Date: 20050202
  Receipt Date: 20041201
  Transmission Date: 20050727
  Serious: No
  Sender: FDA-Public Use
  Company Number: 2004AP06088

PATIENT
  Age: 70 Year
  Sex: Female
  Weight: 39 kg

DRUGS (9)
  1. SEROQUEL [Suspect]
     Indication: SENILE DEMENTIA
     Dosage: 25 MG TID PO
     Route: 048
     Dates: start: 20040930, end: 20041020
  2. SEROQUEL [Suspect]
     Indication: SENILE DEMENTIA
     Dosage: 150 MG PO
     Route: 048
     Dates: start: 20041021, end: 20041027
  3. SEROQUEL [Suspect]
     Indication: SENILE DEMENTIA
     Dosage: 100 MG TID PO
     Route: 048
     Dates: start: 20041028, end: 20041104
  4. LIMAS [Concomitant]
  5. BROMOCRIPTINE [Concomitant]
  6. TASMOLIN [Concomitant]
  7. DORAL [Concomitant]
  8. MAGNESIUM OXIDE [Concomitant]
  9. PANTETHINE [Concomitant]

REACTIONS (9)
  - ALANINE AMINOTRANSFERASE INCREASED [None]
  - ANAEMIA [None]
  - ASPARTATE AMINOTRANSFERASE INCREASED [None]
  - BLOOD CREATINE PHOSPHOKINASE INCREASED [None]
  - HEPATIC FUNCTION ABNORMAL [None]
  - HYPERGLYCAEMIA [None]
  - PLEURAL EFFUSION [None]
  - PNEUMONIA [None]
  - VOMITING [None]
